FAERS Safety Report 4645054-2 (Version None)
Quarter: 2005Q2

REPORT INFORMATION
  Report Type: 
  Country: None (occurrence: None)
  Receive Date: 20050426
  Receipt Date: 20050304
  Transmission Date: 20051028
  Serious: Yes (Disabling)
  Sender: FDA-Public Use
  Company Number: JP-ROCHE-399013

PATIENT
  Age: 6 Year
  Sex: Male

DRUGS (3)
  1. TAMIFLU [Suspect]
     Route: 048
     Dates: start: 20050228, end: 20050228
  2. POLARAMINE [Concomitant]
     Route: 048
     Dates: start: 20050228
  3. MUCODYNE [Concomitant]
     Route: 048
     Dates: start: 20050228

REACTIONS (4)
  - ABNORMAL BEHAVIOUR [None]
  - HALLUCINATION [None]
  - SCREAMING [None]
  - SOMNOLENCE [None]
